FAERS Safety Report 6441435-5 (Version None)
Quarter: 2009Q4

REPORT INFORMATION
  Report Type: 
  Country: None (occurrence: None)
  Receive Date: 20091116
  Receipt Date: 20091103
  Transmission Date: 20100525
  Serious: Yes (Hospitalization)
  Sender: FDA-Public Use
  Company Number: A0767493A

PATIENT
  Age: 71 Year
  Sex: Male
  Weight: 103.2 kg

DRUGS (18)
  1. ADVAIR DISKUS 100/50 [Suspect]
     Indication: CHRONIC OBSTRUCTIVE PULMONARY DISEASE
     Dosage: 1PUFF TWICE PER DAY
     Route: 055
     Dates: start: 20061113, end: 20061127
  2. BIPAP [Concomitant]
  3. DUONEB [Concomitant]
     Route: 055
     Dates: start: 20061113, end: 20061127
  4. LIPITOR [Concomitant]
  5. ZETIA [Concomitant]
  6. ACCUPRIL [Concomitant]
  7. SPIRONOLACTONE [Concomitant]
  8. HYDROCHLOROTHIAZIDE [Concomitant]
  9. LEXAPRO [Concomitant]
  10. CELEBREX [Concomitant]
  11. ASPIRIN [Concomitant]
  12. PLAVIX [Concomitant]
  13. METFORMIN HCL [Concomitant]
  14. ALBUTEROL [Concomitant]
  15. FLOMAX [Concomitant]
  16. ATROVENT [Concomitant]
     Route: 055
     Dates: start: 20061127
  17. FORADIL [Concomitant]
  18. LIDOCAINE [Concomitant]

REACTIONS (8)
  - BURNING SENSATION [None]
  - CAUSTIC INJURY [None]
  - CHEST PAIN [None]
  - CHRONIC RESPIRATORY FAILURE [None]
  - DYSPHONIA [None]
  - DYSPNOEA [None]
  - LUNG SQUAMOUS CELL CARCINOMA STAGE UNSPECIFIED [None]
  - RESPIRATORY DISTRESS [None]
